FAERS Safety Report 8106520-0 (Version None)
Quarter: 2012Q1

REPORT INFORMATION
  Report Type: 
  Country: None (occurrence: None)
  Receive Date: 20120202
  Receipt Date: 20120120
  Transmission Date: 20120608
  Serious: Yes (Hospitalization)
  Sender: FDA-Public Use
  Company Number: FR-NAPPMUNDI-GBR-2011-0009219

PATIENT
  Age: 74 Year
  Sex: Female

DRUGS (10)
  1. ROCEPHIN [Suspect]
     Indication: URINARY TRACT INFECTION
     Dosage: UNK
     Route: 065
     Dates: start: 20111016, end: 20111026
  2. OFLOXACIN [Concomitant]
     Indication: URINARY TRACT INFECTION
     Dosage: UNK
     Route: 065
     Dates: start: 20110916, end: 20111001
  3. OXYCONTIN [Suspect]
     Indication: SCIATICA
     Dosage: UNK
     Route: 065
     Dates: start: 20111013
  4. PIPERACILLIN/TAZOBACTAM [Suspect]
     Indication: PELVIC DISCOMFORT
     Dosage: UNK
     Route: 042
     Dates: start: 20111013, end: 20111016
  5. AMIKACIN [Concomitant]
     Indication: URINARY TRACT INFECTION
     Dosage: UNK
     Dates: start: 20110911, end: 20110916
  6. NEXIUM [Concomitant]
     Dosage: UNK
  7. POTASSIUM CHLORIDE [Concomitant]
  8. ROCEPHIN [Suspect]
     Dosage: UNK
     Route: 065
     Dates: start: 20110911
  9. XANAX [Concomitant]
  10. VFEND [Concomitant]

REACTIONS (4)
  - RASH [None]
  - PRURITUS [None]
  - BURNING SENSATION [None]
  - ERYTHEMA [None]
